FAERS Safety Report 21308385 (Version 1)
Quarter: 2022Q3

REPORT INFORMATION
  Report Type: Spontaneous
  Country: IR (occurrence: IR)
  Receive Date: 20220908
  Receipt Date: 20220908
  Transmission Date: 20221026
  Serious: Yes (Other)
  Sender: FDA-Public Use
  Company Number: IR-MYLANLABS-2022M1092310

PATIENT
  Age: 84 Year
  Sex: Male

DRUGS (4)
  1. FLUOROURACIL [Suspect]
     Active Substance: FLUOROURACIL
     Indication: Metastatic gastric cancer
     Dosage: UNK, CYCLE, ONE SESSION WITH CONTINUOUS INFUSION FOR 46 HOURS; THE PATIENT RECEIVED 3 SESSIONS WITH
     Route: 065
  2. OXALIPLATIN [Suspect]
     Active Substance: OXALIPLATIN
     Indication: Metastatic gastric cancer
     Dosage: UNK, CYCLE, ONE SESSION WITH CONTINUOUS INFUSION FOR 46 HOURS; THE PATIENT RECEIVED 3 SESSIONS WITH
     Route: 065
  3. LEUCOVORIN [Suspect]
     Active Substance: LEUCOVORIN
     Indication: Chemotherapy side effect prophylaxis
     Dosage: UNK, CYCLE, ONE SESSION WITH CONTINUOUS INFUSION FOR 46 HOURS; THE PATIENT RECEIVED 3 SESSIONS WITH
     Route: 065
  4. METOPROLOL [Concomitant]
     Active Substance: METOPROLOL
     Indication: Hypertension
     Dosage: UNK
     Route: 065

REACTIONS (3)
  - Cutaneous vasculitis [Recovering/Resolving]
  - Pyoderma gangrenosum [Recovering/Resolving]
  - Ecthyma [Recovering/Resolving]
